FAERS Safety Report 12882026 (Version 1)
Quarter: 2016Q4

REPORT INFORMATION
  Report Type: Spontaneous
  Country: GB (occurrence: GB)
  Receive Date: 20161025
  Receipt Date: 20161025
  Transmission Date: 20170207
  Serious: Yes (Disabling, Other)
  Sender: FDA-Public Use
  Company Number: GB-GILEAD-2016-0238802

PATIENT
  Age: 49 Year
  Sex: Male
  Weight: 61 kg

DRUGS (5)
  1. MIRTAZAPINE. [Concomitant]
     Active Substance: MIRTAZAPINE
  2. RIBAVIRIN. [Concomitant]
     Active Substance: RIBAVIRIN
     Dates: start: 201607, end: 2016
  3. SOVALDI [Suspect]
     Active Substance: SOFOSBUVIR
     Indication: HEPATITIS C
     Dosage: UNK
     Route: 048
     Dates: start: 201607, end: 201610
  4. INTERFERON [Concomitant]
     Active Substance: INTERFERON
     Dates: start: 201607, end: 2016
  5. BUPRENORPHINE. [Concomitant]
     Active Substance: BUPRENORPHINE

REACTIONS (1)
  - Aplastic anaemia [Not Recovered/Not Resolved]

NARRATIVE: CASE EVENT DATE: 201609
